FAERS Safety Report 8806185 (Version 2)
Quarter: 2012Q4

REPORT INFORMATION
  Report Type: Spontaneous
  Country: US (occurrence: None)
  Receive Date: 20120917
  Receipt Date: 20120917
  Transmission Date: 20130627
  Serious: Yes (Disabling)
  Sender: FDA-Public Use
  Company Number: SP05901

PATIENT
  Sex: Female
  Weight: 63.5 kg

DRUGS (1)
  1. XIFAXAN [Suspect]
     Indication: LOOSE STOOLS
     Dosage: (550 mg, 2 in 1 D)
     Route: 048
     Dates: start: 20120716, end: 20120718

REACTIONS (3)
  - Diarrhoea haemorrhagic [None]
  - Mucous stools [None]
  - Impaired work ability [None]
